FAERS Safety Report 7275195-5 (Version None)
Quarter: 2011Q1

REPORT INFORMATION
  Report Type: 
  Country: None (occurrence: None)
  Receive Date: 20110204
  Receipt Date: 20110126
  Transmission Date: 20110831
  Serious: Yes (Death, Hospitalization, Other)
  Sender: FDA-Public Use
  Company Number: PHHO2011BR01909

PATIENT
  Sex: Female

DRUGS (10)
  1. PREDNISONE [Suspect]
     Dosage: 15 MG, QD
     Route: 048
     Dates: start: 20090918, end: 20090919
  2. PREDNISONE [Suspect]
     Dosage: 12 MG, QD
     Route: 048
     Dates: start: 20091107, end: 20091114
  3. PREDNISONE [Suspect]
     Indication: RENAL TRANSPLANT
     Dosage: 20 MG, QD
     Route: 048
     Dates: start: 20090816, end: 20090917
  4. PREDNISONE [Suspect]
     Dosage: 15 MG, QD
     Route: 048
     Dates: start: 20091101, end: 20091106
  5. PREDNISONE [Suspect]
     Dosage: 7.5 MG, QD
     Route: 048
     Dates: start: 20091124
  6. TACROLIMUS [Suspect]
     Indication: RENAL TRANSPLANT
     Dosage: 5 MG / DAY
     Route: 048
     Dates: start: 20090723
  7. MYFORTIC [Suspect]
     Indication: RENAL TRANSPLANT
     Dosage: 720 MG / DAY
     Route: 048
     Dates: start: 20090831, end: 20090908
  8. MYFORTIC [Suspect]
     Dosage: 1080 MG,/ DAY
     Route: 048
     Dates: start: 20090909, end: 20090922
  9. PREDNISONE [Suspect]
     Dosage: 10 MG, QD
     Route: 048
     Dates: start: 20091115, end: 20091123
  10. PREDNISONE [Suspect]
     Dosage: 20 MG, QD
     Route: 048
     Dates: start: 20091010, end: 20091030

REACTIONS (13)
  - BACTERAEMIA [None]
  - ESCHERICHIA SEPSIS [None]
  - NEUROLOGICAL SYMPTOM [None]
  - TREMOR [None]
  - CYTOMEGALOVIRUS INFECTION [None]
  - LOCKED-IN SYNDROME [None]
  - MENINGITIS BACTERIAL [None]
  - KLEBSIELLA INFECTION [None]
  - VOMITING [None]
  - SUPERINFECTION [None]
  - RESPIRATORY TRACT INFECTION [None]
  - PYREXIA [None]
  - DEEP VEIN THROMBOSIS [None]
